FAERS Safety Report 5076661-3 (Version None)
Quarter: 2006Q3

REPORT INFORMATION
  Report Type: 
  Country: None (occurrence: None)
  Receive Date: 20060810
  Receipt Date: 20060803
  Transmission Date: 20061208
  Serious: Yes (Life-Threatening, Hospitalization)
  Sender: FDA-Public Use
  Company Number: GB-AVENTIS-200614249EU

PATIENT
  Age: 55 Year
  Sex: Male

DRUGS (8)
  1. FUROSEMIDE [Suspect]
     Indication: PULMONARY OEDEMA
     Route: 048
  2. ACETAMINOPHEN W/ CODEINE [Concomitant]
     Indication: PAIN
     Dosage: DOSE: UNKNOWN DOSAGE
     Route: 048
  3. PHENYTOIN SODIUM CAP [Concomitant]
     Indication: DRUG USE FOR UNKNOWN INDICATION
     Dosage: DOSE: UNKNOWN DOSAGE
     Route: 048
  4. HYDROCORTISONE TAB [Concomitant]
     Indication: DRUG USE FOR UNKNOWN INDICATION
     Dosage: DOSE: UNKNOWN DOSAGE
  5. THYROXINE [Concomitant]
     Indication: HYPOTHYROIDISM
     Route: 048
  6. METFORMIN [Concomitant]
     Indication: DIABETES MELLITUS INSULIN-DEPENDENT
     Route: 048
  7. NOVOMIX [Concomitant]
     Indication: DRUG USE FOR UNKNOWN INDICATION
     Dosage: DOSE: UNKNOWN DOSAGE
  8. SIMVASTATIN [Concomitant]
     Indication: BLOOD CHOLESTEROL INCREASED
     Route: 048

REACTIONS (4)
  - ANGIONEUROTIC OEDEMA [None]
  - EYELID OEDEMA [None]
  - PRURITUS [None]
  - SWELLING FACE [None]
